FAERS Safety Report 23267108 (Version 1)
Quarter: 2023Q4

REPORT INFORMATION
  Report Type: Spontaneous
  Country: EU (occurrence: None)
  Receive Date: 20231206
  Receipt Date: 20231206
  Transmission Date: 20240110
  Serious: Yes (Hospitalization)
  Sender: FDA-Public Use
  Company Number: None

PATIENT
  Age: 17 Year
  Sex: Female

DRUGS (1)
  1. TEPADINA [Suspect]
     Active Substance: THIOTEPA
     Indication: Pinealoblastoma
     Dosage: IN TOTAL
     Route: 042
     Dates: start: 20230930, end: 20231002

REACTIONS (3)
  - Melanoderma [Recovering/Resolving]
  - Pruritus [Recovered/Resolved]
  - Rash erythematous [Recovered/Resolved]

NARRATIVE: CASE EVENT DATE: 20231001
